FAERS Safety Report 15485416 (Version 1)
Quarter: 2018Q4

REPORT INFORMATION
  Report Type: Spontaneous
  Country: US (occurrence: US)
  Receive Date: 20181010
  Receipt Date: 20181010
  Transmission Date: 20190205
  Serious: No
  Sender: FDA-Public Use
  Company Number: US-ROCHE-2168270

PATIENT
  Sex: Female

DRUGS (1)
  1. ESBRIET [Suspect]
     Active Substance: PIRFENIDONE
     Indication: PRODUCT USED FOR UNKNOWN INDICATION
     Dosage: ONE TABLET, 3 TIMES DAILY ;ONGOING: UNKNOWN
     Route: 048

REACTIONS (7)
  - Dizziness [Unknown]
  - Sinus headache [Unknown]
  - Nausea [Unknown]
  - Fatigue [Unknown]
  - Abdominal distension [Unknown]
  - Early satiety [Unknown]
  - Decreased appetite [Unknown]
